FAERS Safety Report 24889299 (Version 1)
Quarter: 2025Q1

REPORT INFORMATION
  Report Type: Other
  Country: US (occurrence: US)
  Receive Date: 20250127
  Receipt Date: 20250127
  Transmission Date: 20250409
  Serious: Yes (Hospitalization)
  Sender: BIONPHARMA INC.
  Company Number: US-Bion-014684

PATIENT
  Age: 28 Year
  Sex: Female

DRUGS (7)
  1. VALPROIC ACID [Suspect]
     Active Substance: VALPROIC ACID
     Indication: Idiopathic generalised epilepsy
  2. LAMOTRIGINE [Concomitant]
     Active Substance: LAMOTRIGINE
     Indication: Idiopathic generalised epilepsy
  3. CLOBAZAM [Concomitant]
     Active Substance: CLOBAZAM
     Indication: Idiopathic generalised epilepsy
  4. TOPIRAMATE [Concomitant]
     Active Substance: TOPIRAMATE
     Indication: Idiopathic generalised epilepsy
  5. LEVETIRACETAM [Concomitant]
     Active Substance: LEVETIRACETAM
     Indication: Idiopathic generalised epilepsy
  6. RUFINAMIDE [Concomitant]
     Active Substance: RUFINAMIDE
     Indication: Idiopathic generalised epilepsy
  7. LACOSAMIDE [Concomitant]
     Active Substance: LACOSAMIDE
     Indication: Idiopathic generalised epilepsy

REACTIONS (3)
  - Drug resistance [Unknown]
  - Treatment noncompliance [Unknown]
  - Intentional product misuse [Unknown]
